FAERS Safety Report 9377028 (Version 1)
Quarter: 2013Q3

REPORT INFORMATION
  Report Type: Spontaneous
  Country: CO (occurrence: CO)
  Receive Date: 20130701
  Receipt Date: 20130701
  Transmission Date: 20140515
  Serious: Yes (Death)
  Sender: FDA-Public Use
  Company Number: CO-PFIZER INC-2013191546

PATIENT
  Age: 62 Year
  Sex: Male

DRUGS (5)
  1. XALATAN [Suspect]
     Dosage: 2.5 ML, 1X/DAY
     Route: 047
     Dates: start: 2005
  2. METOPROLOL [Concomitant]
     Indication: CARDIAC DISORDER
     Dosage: 5 MG, 1X/DAY
     Route: 048
     Dates: start: 1999
  3. METOPROLOL [Concomitant]
     Indication: BLOOD PRESSURE ABNORMAL
  4. ISORDIL [Concomitant]
     Indication: CARDIAC DISORDER
     Dosage: 10 MG, 1X/DAY
     Route: 048
     Dates: start: 1999
  5. ISORDIL [Concomitant]
     Indication: BLOOD PRESSURE ABNORMAL

REACTIONS (1)
  - Infarction [Fatal]
